FAERS Safety Report 5939658-4 (Version None)
Quarter: 2008Q4

REPORT INFORMATION
  Report Type: 
  Country: None (occurrence: None)
  Receive Date: 20081030
  Receipt Date: 20081030
  Transmission Date: 20090506
  Serious: Yes (Disabling, Other)
  Sender: FDA-Public Use
  Company Number: None

PATIENT
  Age: 58 Year
  Sex: Female
  Weight: 65.7716 kg

DRUGS (8)
  1. CHANTIX [Suspect]
     Indication: SMOKING CESSATION THERAPY
     Dosage: 1 A DAY
     Dates: start: 20070701, end: 20070801
  2. CYTOMEL [Concomitant]
  3. DIOVAN [Concomitant]
  4. SINGULAIR [Concomitant]
  5. PRISTIQ [Concomitant]
  6. XANAX [Concomitant]
  7. ZETIA [Concomitant]
  8. LUNESTA [Concomitant]

REACTIONS (4)
  - DEPRESSION [None]
  - OVERDOSE [None]
  - PULMONARY THROMBOSIS [None]
  - SUICIDE ATTEMPT [None]
